FAERS Safety Report 20704176 (Version 2)
Quarter: 2022Q2

REPORT INFORMATION
  Report Type: Spontaneous
  Country: JP (occurrence: None)
  Receive Date: 20220413
  Receipt Date: 20220502
  Transmission Date: 20220720
  Serious: Yes (Hospitalization)
  Sender: FDA-Public Use
  Company Number: 2022A144001

PATIENT
  Age: 55 Year
  Sex: Male

DRUGS (1)
  1. DAPAGLIFLOZIN [Suspect]
     Active Substance: DAPAGLIFLOZIN
     Indication: Diabetes mellitus
     Dosage: 5.0MG UNKNOWN
     Route: 048

REACTIONS (2)
  - Facial spasm [Unknown]
  - Euglycaemic diabetic ketoacidosis [Unknown]
